FAERS Safety Report 22005989 (Version 2)
Quarter: 2023Q1

REPORT INFORMATION
  Report Type: Spontaneous
  Country: US (occurrence: US)
  Receive Date: 20230217
  Receipt Date: 20230302
  Transmission Date: 20230417
  Serious: Yes (Hospitalization, Other)
  Sender: FDA-Public Use
  Company Number: US-PROPHARMA-838

PATIENT
  Sex: Female

DRUGS (1)
  1. AYVAKIT [Suspect]
     Active Substance: AVAPRITINIB
     Indication: Acute myeloid leukaemia
     Route: 065
     Dates: start: 20230131

REACTIONS (4)
  - Haemoglobin abnormal [Unknown]
  - Leukaemia [Unknown]
  - White blood cell count abnormal [Unknown]
  - Off label use [Unknown]
